FAERS Safety Report 10744210 (Version 1)
Quarter: 2015Q1

REPORT INFORMATION
  Report Type: Spontaneous
  Country: US (occurrence: None)
  Receive Date: 20150126
  Receipt Date: 20150126
  Transmission Date: 20150721
  Serious: Yes (Other)
  Sender: FDA-Public Use
  Company Number: LH201500013

PATIENT
  Age: 36 Year
  Sex: Female

DRUGS (2)
  1. PRENATAL VITAMINS/02014401/ASCORBIC ACID, CALCIUM PANTOTHENATE, CYANOCOBALAMIN, ERGOCALCIFEROL, NICOTINAMIDE, PYRIDOXINE HYDROCHLORIDE, RETINOL PALMITATE, RIBOFLAVIN, THIAMINE MONONITRATE) [Concomitant]
  2. MAKENA [Suspect]
     Active Substance: HYDROXYPROGESTERONE CAPROATE
     Indication: PREMATURE DELIVERY
     Route: 030
     Dates: start: 20141014, end: 201501

REACTIONS (5)
  - Dyspnoea [None]
  - Cough [None]
  - Throat tightness [None]
  - Headache [None]
  - Anaphylactic reaction [None]

NARRATIVE: CASE EVENT DATE: 201410
